FAERS Safety Report 4386486-X (Version None)
Quarter: 2004Q2

REPORT INFORMATION
  Report Type: 
  Country: None (occurrence: None)
  Receive Date: 20040623
  Receipt Date: 20040607
  Transmission Date: 20050107
  Serious: Yes (Death)
  Sender: FDA-Public Use
  Company Number: ST-2004-007859

PATIENT
  Age: 60 Year
  Sex: Male

DRUGS (3)
  1. OLMESARTAN [Suspect]
     Indication: HYPERTENSION
     Dosage: 10 MG QD PO
     Route: 048
     Dates: start: 20040604, end: 20040604
  2. BEZATOL - SLOW RELEASE [Concomitant]
  3. SELOKEN - SLOW RELEASE [Concomitant]

REACTIONS (2)
  - LOSS OF CONSCIOUSNESS [None]
  - RESPIRATORY ARREST [None]
